FAERS Safety Report 6803200-6 (Version None)
Quarter: 2010Q2

REPORT INFORMATION
  Report Type: 
  Country: None (occurrence: None)
  Receive Date: 20100628
  Receipt Date: 20100622
  Transmission Date: 20101027
  Serious: Yes (Other)
  Sender: FDA-Public Use
  Company Number: A0867201A

PATIENT
  Sex: Female

DRUGS (1)
  1. VENTOLIN HFA [Suspect]
     Indication: BRONCHOSPASM
     Route: 055

REACTIONS (7)
  - BRONCHOSPASM [None]
  - LUNG INFECTION [None]
  - NASOPHARYNGITIS [None]
  - PNEUMONIA [None]
  - PRODUCT QUALITY ISSUE [None]
  - SUFFOCATION FEELING [None]
  - THERAPEUTIC RESPONSE DECREASED [None]
